FAERS Safety Report 4663498-X (Version None)
Quarter: 2005Q2

REPORT INFORMATION
  Report Type: 
  Country: None (occurrence: None)
  Receive Date: 20050517
  Receipt Date: 20050404
  Transmission Date: 20051028
  Serious: Yes (Other)
  Sender: FDA-Public Use
  Company Number: US-GLAXOSMITHKLINE-A0552663A

PATIENT
  Age: 48 Year
  Sex: Male

DRUGS (8)
  1. WELLBUTRIN XL [Suspect]
     Indication: DRUG USE FOR UNKNOWN INDICATION
     Dosage: 450MG PER DAY
     Route: 048
  2. ESKALITH [Concomitant]
     Dosage: 450MG TWICE PER DAY
  3. SEROQUEL [Concomitant]
     Dosage: 25MG AT NIGHT
  4. AMBIEN [Concomitant]
     Dosage: 10MG AT NIGHT
  5. PREVACID [Concomitant]
     Dosage: 30MG UNKNOWN
  6. ALLEGRA [Concomitant]
     Dosage: 180MG UNKNOWN
  7. SYNTHROID [Concomitant]
     Dosage: .025MG UNKNOWN
  8. TRICOR [Concomitant]
     Dosage: 145MG AT NIGHT

REACTIONS (3)
  - CONVULSION [None]
  - FATIGUE [None]
  - TONGUE BITING [None]
